FAERS Safety Report 4476633-3 (Version None)
Quarter: 2004Q4

REPORT INFORMATION
  Report Type: 
  Country: None (occurrence: None)
  Receive Date: 20041015
  Receipt Date: 20041015
  Transmission Date: 20050328
  Serious: Yes (Hospitalization)
  Sender: FDA-Public Use
  Company Number: None

PATIENT
  Age: 18 Year
  Sex: Female
  Weight: 63 kg

DRUGS (2)
  1. VENLAFAXINE HCL [Suspect]
     Indication: DEPRESSION
     Dosage: ORAL
     Route: 048
     Dates: start: 20040302, end: 20040912
  2. RISPERDAL [Suspect]
     Indication: ACUTE PSYCHOSIS
     Dosage: ORAL
     Route: 048
     Dates: start: 20040912, end: 20040918

REACTIONS (5)
  - ACUTE PSYCHOSIS [None]
  - DYSTONIA [None]
  - INSOMNIA [None]
  - MENTAL STATUS CHANGES [None]
  - TACHYCARDIA [None]
